FAERS Safety Report 4300146-2 (Version None)
Quarter: 2004Q1

REPORT INFORMATION
  Report Type: 
  Country: None (occurrence: None)
  Receive Date: 20040120
  Receipt Date: 20030812
  Transmission Date: 20041129
  Serious: No
  Sender: FDA-Public Use
  Company Number: 200310452BBE

PATIENT
  Sex: 0

DRUGS (1)
  1. PLASBUMIN-25 [Suspect]

REACTIONS (1)
  - CHILLS [None]
